FAERS Safety Report 13521372 (Version 2)
Quarter: 2017Q2

REPORT INFORMATION
  Report Type: Spontaneous
  Country: US (occurrence: US)
  Receive Date: 20170508
  Receipt Date: 20170529
  Transmission Date: 20170830
  Serious: No
  Sender: FDA-Public Use
  Company Number: US-PFIZER INC-2017200569

PATIENT
  Age: 80 Year
  Sex: Male
  Weight: 72 kg

DRUGS (4)
  1. METOPROLOL. [Concomitant]
     Active Substance: METOPROLOL
     Indication: HEART RATE INCREASED
     Dosage: 50 MG, 1X/DAY
     Dates: start: 2001
  2. LISINOPRIL. [Concomitant]
     Active Substance: LISINOPRIL
     Indication: BLOOD PRESSURE ABNORMAL
     Dosage: 5 MG, 1X/DAY
     Dates: start: 2001
  3. VIAGRA [Suspect]
     Active Substance: SILDENAFIL CITRATE
     Indication: ERECTILE DYSFUNCTION
     Dosage: 50 MG, UNK
  4. SIMVASTATIN. [Concomitant]
     Active Substance: SIMVASTATIN
     Indication: BLOOD CHOLESTEROL ABNORMAL
     Dosage: 10 MG, 1X/DAY
     Dates: start: 2001

REACTIONS (1)
  - Heart rate increased [Recovered/Resolved]

NARRATIVE: CASE EVENT DATE: 20170502
